FAERS Safety Report 26199754 (Version 1)
Quarter: 2025Q4

REPORT INFORMATION
  Report Type: Report from Study
  Country: GB (occurrence: GB)
  Receive Date: 20251225
  Receipt Date: 20251225
  Transmission Date: 20260118
  Serious: Yes (Other)
  Sender: TAKEDA
  Company Number: GB-TAKEDA-2024TUS123292

PATIENT
  Age: 82 Year
  Sex: Female

DRUGS (2)
  1. VEDOLIZUMAB [Suspect]
     Active Substance: VEDOLIZUMAB
     Indication: Colitis ulcerative
     Dosage: 108 MILLIGRAM, Q2WEEKS
     Dates: start: 20240703
  2. VEDOLIZUMAB [Suspect]
     Active Substance: VEDOLIZUMAB

REACTIONS (13)
  - Colitis ulcerative [Unknown]
  - Osteoporosis [Unknown]
  - Vascular pain [Unknown]
  - Product dose omission issue [Unknown]
  - Tooth disorder [Unknown]
  - Platelet count decreased [Unknown]
  - Haemorrhage [Unknown]
  - Tooth fracture [Unknown]
  - Injection site pruritus [Unknown]
  - Flatulence [Unknown]
  - Headache [Unknown]
  - Arthralgia [Unknown]
  - Pruritus [Unknown]
